FAERS Safety Report 6392095-3 (Version None)
Quarter: 2009Q4

REPORT INFORMATION
  Report Type: 
  Country: None (occurrence: None)
  Receive Date: 20091007
  Receipt Date: 20090929
  Transmission Date: 20100525
  Serious: Yes (Other)
  Sender: FDA-Public Use
  Company Number: JP-MERCK-0910USA00282

PATIENT

DRUGS (2)
  1. PEPCID [Suspect]
     Route: 048
  2. GANATON [Concomitant]
     Route: 065

REACTIONS (1)
  - HEPATITIS FULMINANT [None]
